FAERS Safety Report 6642191-8 (Version None)
Quarter: 2010Q1

REPORT INFORMATION
  Report Type: 
  Country: None (occurrence: None)
  Receive Date: 20100319
  Receipt Date: 20100310
  Transmission Date: 20100710
  Serious: Yes (Other)
  Sender: FDA-Public Use
  Company Number: BR-PFIZER INC-2010031010

PATIENT
  Age: 29 Year
  Sex: Female
  Weight: 60 kg

DRUGS (1)
  1. FARLUTAL [Suspect]
     Indication: AMENORRHOEA
     Dosage: 1 TABLET (UNSPECIFIED DOSAGE) ONCE DAILY, FOR SEVEN DAYS
     Route: 048
     Dates: start: 20100307

REACTIONS (6)
  - DIZZINESS [None]
  - FORMICATION [None]
  - HYPOTENSION [None]
  - NAUSEA [None]
  - PERIPHERAL COLDNESS [None]
  - TREMOR [None]
